FAERS Safety Report 10599246 (Version 2)
Quarter: 2015Q1

REPORT INFORMATION
  Report Type: Spontaneous
  Country: BR (occurrence: BR)
  Receive Date: 20141121
  Receipt Date: 20150130
  Transmission Date: 20150720
  Serious: Yes (Hospitalization, Other)
  Sender: FDA-Public Use
  Company Number: BR-PFIZER INC-2014316884

PATIENT
  Age: 49 Year
  Sex: Female
  Weight: 65 kg

DRUGS (2)
  1. PANTOPRAZOLE [Concomitant]
     Active Substance: PANTOPRAZOLE SODIUM
     Indication: GASTRITIS
     Dosage: 1 DF, 1X/DAY
     Dates: start: 2005
  2. LIPITOR [Suspect]
     Active Substance: ATORVASTATIN CALCIUM
     Indication: BLOOD CHOLESTEROL INCREASED
     Dosage: 40 MG, 2X/DAY
     Route: 048
     Dates: start: 2007, end: 201202

REACTIONS (4)
  - Depression [Unknown]
  - Hypertension [Unknown]
  - Arterial occlusive disease [Recovering/Resolving]
  - Bipolar disorder [Unknown]

NARRATIVE: CASE EVENT DATE: 2007
